FAERS Safety Report 21199857 (Version 1)
Quarter: 2022Q3

REPORT INFORMATION
  Report Type: Spontaneous
  Country: US (occurrence: None)
  Receive Date: 20220810
  Receipt Date: 20220810
  Transmission Date: 20221027
  Serious: No
  Sender: FDA-Public Use
  Company Number: None

PATIENT
  Age: 35 Year
  Sex: Female
  Weight: 60.3 kg

DRUGS (6)
  1. PAXLOVID [Suspect]
     Active Substance: NIRMATRELVIR\RITONAVIR
     Indication: COVID-19
     Dosage: OTHER QUANTITY : 3 PILLS;?FREQUENCY : TWICE A DAY;?
     Route: 048
     Dates: start: 20220808, end: 20220809
  2. VITAMIN B [Concomitant]
     Active Substance: VITAMIN B
  3. VITAMIN C [Concomitant]
     Active Substance: ASCORBIC ACID
  4. pre-natal vitamin [Concomitant]
  5. omega 3 [Concomitant]
  6. 4 thieves tincture [Concomitant]

REACTIONS (2)
  - Throat tightness [None]
  - Dysphagia [None]

NARRATIVE: CASE EVENT DATE: 20220808
